FAERS Safety Report 7337596-6 (Version None)
Quarter: 2011Q1

REPORT INFORMATION
  Report Type: 
  Country: None (occurrence: None)
  Receive Date: 20110303
  Receipt Date: 20110303
  Transmission Date: 20110831
  Serious: No
  Sender: FDA-Public Use
  Company Number: None

PATIENT
  Age: 68 Year
  Sex: Female
  Weight: 47.6277 kg

DRUGS (1)
  1. RECLAST [Suspect]
     Indication: OSTEOPOROSIS
     Dosage: ANNUAL IV DRIP
     Route: 041
     Dates: start: 20090808, end: 20100808

REACTIONS (1)
  - OSTEONECROSIS OF JAW [None]
